FAERS Safety Report 4647639-6 (Version None)
Quarter: 2005Q2

REPORT INFORMATION
  Report Type: 
  Country: None (occurrence: None)
  Receive Date: 20050426
  Receipt Date: 20050415
  Transmission Date: 20051028
  Serious: Yes (Hospitalization)
  Sender: FDA-Public Use
  Company Number: 213866

PATIENT
  Age: 67 Year
  Sex: Female

DRUGS (1)
  1. RAPTIVA [Suspect]
     Indication: PSORIASIS
     Dosage: 107 MG, 1/WEEK, SUBCUTANEOUS
     Route: 058
     Dates: start: 20041122

REACTIONS (1)
  - LEUKAEMIA [None]
